FAERS Safety Report 20717607 (Version 4)
Quarter: 2024Q4

REPORT INFORMATION
  Report Type: Spontaneous
  Country: CA (occurrence: CA)
  Receive Date: 20220417
  Receipt Date: 20241120
  Transmission Date: 20250115
  Serious: Yes (Life-Threatening)
  Sender: CSL BEHRING
  Company Number: CA-BEH-2022144264

PATIENT
  Age: 23 Year
  Sex: Female
  Weight: 94 kg

DRUGS (15)
  1. ALBUREX [Suspect]
     Active Substance: ALBUMIN HUMAN
     Indication: Blood osmolarity
     Dosage: 36 MILLILITER, SINGLE
     Route: 042
     Dates: start: 20210921, end: 20210921
  2. ALBUREX [Suspect]
     Active Substance: ALBUMIN HUMAN
     Dosage: 36 MILLILITER, SOLUTION INTRAVENOUS
     Route: 042
  3. CEFAZOLIN [Concomitant]
     Active Substance: CEFAZOLIN
  4. CISATRACURIUM [Concomitant]
     Active Substance: CISATRACURIUM
  5. ROCURONIUM [Concomitant]
     Active Substance: ROCURONIUM BROMIDE
  6. SUCCINYLCHOLINE [Concomitant]
     Active Substance: SUCCINYLCHOLINE\SUCCINYLCHOLINE CHLORIDE
  7. PROPOFOL [Concomitant]
     Active Substance: PROPOFOL
  8. MIDAZOLAM [Concomitant]
     Active Substance: MIDAZOLAM
  9. FENTANYL [Concomitant]
     Active Substance: FENTANYL
  10. LIDOCAINE [Concomitant]
     Active Substance: LIDOCAINE
  11. BUPIVACAINE [Concomitant]
     Active Substance: BUPIVACAINE
  12. CHLORHEXIDINE [Concomitant]
     Active Substance: CHLORHEXIDINE
  13. METRONIDAZOLE [Concomitant]
     Active Substance: METRONIDAZOLE
  14. SODIUM CHLORIDE [Concomitant]
     Active Substance: SODIUM CHLORIDE
  15. SUCCINYLCHOLINE [Concomitant]
     Active Substance: SUCCINYLCHOLINE\SUCCINYLCHOLINE CHLORIDE

REACTIONS (2)
  - Anaphylactoid reaction [Recovered/Resolved]
  - Hypotensive transfusion reaction [Recovered/Resolved]

NARRATIVE: CASE EVENT DATE: 20210921
